FAERS Safety Report 6252297-3 (Version None)
Quarter: 2009Q3

REPORT INFORMATION
  Report Type: 
  Country: None (occurrence: None)
  Receive Date: 20090701
  Receipt Date: 20060503
  Transmission Date: 20100115
  Serious: Yes (Hospitalization)
  Sender: FDA-Public Use
  Company Number: US-ROCHE-638772

PATIENT
  Sex: Female

DRUGS (16)
  1. ENFUVIRTIDE [Suspect]
     Route: 065
     Dates: start: 20050131, end: 20071101
  2. AZITHROMYCIN [Suspect]
     Indication: DRUG USE FOR UNKNOWN INDICATION
     Dosage: FREQUENCY: Q WK
     Route: 065
     Dates: start: 20060209, end: 20060913
  3. AZITHROMYCIN [Suspect]
     Dosage: FREQUENCY: QD
     Route: 065
     Dates: start: 20060503, end: 20060504
  4. APTIVUS [Concomitant]
     Dosage: FREQUENCY: QD
     Dates: start: 20050131, end: 20060501
  5. NORVIR [Concomitant]
     Dates: start: 20050131, end: 20060504
  6. NORVIR [Concomitant]
     Dates: start: 20060405, end: 20080814
  7. TRUVADA [Concomitant]
     Dosage: FREQUENCY: QD
     Dates: start: 20050131
  8. TRUVADA [Concomitant]
     Dosage: FREQUENCY: QD
     Dates: end: 20080814
  9. PREZISTA [Concomitant]
     Dates: start: 20060405, end: 20080814
  10. FLUCONAZOLE [Concomitant]
     Dosage: FREQUENCY: QD
     Dates: start: 20050131, end: 20060402
  11. TEQUIN [Concomitant]
     Dosage: FREQUENCY: QD
     Dates: start: 20050228, end: 20050310
  12. TEQUIN [Concomitant]
     Dosage: FREQUENCY: QD
     Dates: start: 20060308, end: 20060317
  13. KEFLEX [Concomitant]
     Dates: start: 20050308, end: 20050101
  14. MOXIFLOXACIN HCL [Concomitant]
     Dosage: STOP DATE: 2005
     Dates: start: 20050627
  15. DAPSONE [Concomitant]
     Dosage: FREQUENCY: QD
     Dates: start: 20060209, end: 20060913
  16. CEFTRIAXONE [Concomitant]
     Dosage: FREQUENCY: QD DRUG NAME REPORTED: CEFTRIAXONE IV
     Dates: start: 20060503, end: 20060504

REACTIONS (8)
  - ACUTE PRERENAL FAILURE [None]
  - ANAEMIA [None]
  - CARDIAC FAILURE CONGESTIVE [None]
  - DIARRHOEA [None]
  - EJECTION FRACTION ABNORMAL [None]
  - LIVER FUNCTION TEST ABNORMAL [None]
  - PULMONARY HYPERTENSION [None]
  - SUPRAVENTRICULAR TACHYCARDIA [None]
